FAERS Safety Report 8591266 (Version 3)
Quarter: 2016Q2

REPORT INFORMATION
  Report Type: Report from Study
  Country: US (occurrence: US)
  Receive Date: 20120601
  Receipt Date: 20160425
  Transmission Date: 20160815
  Serious: Yes (Hospitalization, Other)
  Sender: FDA-Public Use
  Company Number: US-JNJFOC-20120520452

PATIENT
  Age: 16 Year
  Sex: Female
  Weight: 51.4 kg

DRUGS (6)
  1. PROBIOTICS [Concomitant]
     Active Substance: PROBIOTICS NOS
  2. IRON [Concomitant]
     Active Substance: IRON
  3. MULTIVITAMINS [Concomitant]
     Active Substance: VITAMINS
  4. INFLIXIMAB, RECOMBINANT [Suspect]
     Active Substance: INFLIXIMAB
     Indication: COLITIS ULCERATIVE
     Route: 042
     Dates: start: 20100625, end: 20120323
  5. PREDNISONE. [Concomitant]
     Active Substance: PREDNISONE
  6. DIFICID [Concomitant]
     Active Substance: FIDAXOMICIN

REACTIONS (1)
  - Colitis ulcerative [Recovered/Resolved]

NARRATIVE: CASE EVENT DATE: 20120508
